FAERS Safety Report 4928565-1 (Version None)
Quarter: 2006Q1

REPORT INFORMATION
  Report Type: 
  Country: None (occurrence: None)
  Receive Date: 20060223
  Receipt Date: 20060209
  Transmission Date: 20060701
  Serious: Yes (Other)
  Sender: FDA-Public Use
  Company Number: 200610645BCC

PATIENT
  Age: 44 Year
  Sex: Female
  Weight: 71.6683 kg

DRUGS (1)
  1. ALEVE [Suspect]
     Indication: PAIN IN JAW
     Dosage: 440 MG, OM, ORAL
     Route: 048
     Dates: start: 20060101, end: 20060208

REACTIONS (3)
  - BLOOD PRESSURE INCREASED [None]
  - ECONOMIC PROBLEM [None]
  - MIGRAINE [None]
